FAERS Safety Report 15327066 (Version 5)
Quarter: 2018Q4

REPORT INFORMATION
  Report Type: Spontaneous
  Country: AU (occurrence: AU)
  Receive Date: 20180828
  Receipt Date: 20181026
  Transmission Date: 20190204
  Serious: Yes (Other)
  Sender: FDA-Public Use
  Company Number: AU-PFIZER INC-2018338859

PATIENT
  Sex: Female

DRUGS (2)
  1. GENOTROPIN [Suspect]
     Active Substance: SOMATROPIN
     Dosage: 1 SYRINGE
  2. GENOTROPIN [Suspect]
     Active Substance: SOMATROPIN
     Dosage: 2 SYRINGES

REACTIONS (1)
  - Neoplasm [Unknown]
